FAERS Safety Report 14598369 (Version 1)
Quarter: 2018Q1

REPORT INFORMATION
  Report Type: Spontaneous
  Country: US (occurrence: US)
  Receive Date: 20180304
  Receipt Date: 20180304
  Transmission Date: 20180509
  Serious: Yes (Disabling)
  Sender: FDA-Public Use
  Company Number: None

PATIENT
  Age: 52 Year
  Sex: Female
  Weight: 92.99 kg

DRUGS (1)
  1. MRI CONTRAST - GADOVIST [Suspect]
     Active Substance: GADOBUTROL

REACTIONS (8)
  - Feeling hot [None]
  - Cerebral disorder [None]
  - Contrast media deposition [None]
  - Headache [None]
  - Drug screen positive [None]
  - Burning sensation [None]
  - Arthralgia [None]
  - Paraesthesia [None]

NARRATIVE: CASE EVENT DATE: 20171201
